FAERS Safety Report 5738727-1 (Version None)
Quarter: 2008Q2

REPORT INFORMATION
  Report Type: 
  Country: None (occurrence: None)
  Receive Date: 20080515
  Receipt Date: 20080505
  Transmission Date: 20081010
  Serious: Yes (Hospitalization)
  Sender: FDA-Public Use
  Company Number: ID-NOVOPROD-275082

PATIENT
  Age: 80 Year
  Sex: Male

DRUGS (1)
  1. ACTRAPID NOVOLET [Suspect]
     Indication: DIABETES MELLITUS
     Dosage: 3 X 10 IU, QD

REACTIONS (2)
  - EXPIRED DRUG ADMINISTERED [None]
  - MENTAL DISORDER [None]
